FAERS Safety Report 7743864-6 (Version None)
Quarter: 2011Q3

REPORT INFORMATION
  Report Type: 
  Country: None (occurrence: None)
  Receive Date: 20110912
  Receipt Date: 20110902
  Transmission Date: 20111222
  Serious: Yes (Death)
  Sender: FDA-Public Use
  Company Number: US-GLAXOSMITHKLINE-A0911460A

PATIENT
  Sex: Male

DRUGS (1)
  1. AVANDIA [Suspect]
     Indication: DIABETES MELLITUS
     Dosage: 8MG PER DAY
     Route: 048
     Dates: start: 20000401, end: 20070401

REACTIONS (3)
  - CARDIOVASCULAR DISORDER [None]
  - ARTERIOSCLEROSIS [None]
  - CARDIOMEGALY [None]
